FAERS Safety Report 5382125-X (Version None)
Quarter: 2007Q3

REPORT INFORMATION
  Report Type: 
  Country: None (occurrence: None)
  Receive Date: 20070709
  Receipt Date: 20070702
  Transmission Date: 20080115
  Serious: No
  Sender: FDA-Public Use
  Company Number: US-ASTRAZENECA-2006UW08268

PATIENT
  Age: 58 Year
  Sex: Male
  Weight: 97.7 kg

DRUGS (1)
  1. SEROQUEL [Suspect]
     Route: 048
     Dates: start: 20060201

REACTIONS (1)
  - DIABETES MELLITUS [None]
